FAERS Safety Report 4899603-X (Version None)
Quarter: 2006Q1

REPORT INFORMATION
  Report Type: 
  Country: None (occurrence: None)
  Receive Date: 20060131
  Receipt Date: 20060118
  Transmission Date: 20060701
  Serious: Yes (Other)
  Sender: FDA-Public Use
  Company Number: PCA0475942

PATIENT
  Age: 29 Year
  Sex: Female
  Weight: 63.5036 kg

DRUGS (6)
  1. NICOTINE POLACRILEX (MINT) [Suspect]
     Indication: SMOKING CESSATION THERAPY
     Dosage: 4-6 MG, DAILY, ORAL
     Route: 048
     Dates: start: 20051226, end: 20060112
  2. FUROSEMIDE [Concomitant]
  3. LEVOTHYROXINE SODIUM [Concomitant]
  4. CLONAZEPAM [Concomitant]
  5. KEPPRA [Concomitant]
  6. SEBATUL [Concomitant]

REACTIONS (1)
  - GRAND MAL CONVULSION [None]
